FAERS Safety Report 5645170-2 (Version None)
Quarter: 2008Q1

REPORT INFORMATION
  Report Type: 
  Country: None (occurrence: None)
  Receive Date: 20080229
  Receipt Date: 20080218
  Transmission Date: 20080703
  Serious: Yes (Death)
  Sender: FDA-Public Use
  Company Number: DE-BAYER-200813479GPV

PATIENT
  Age: 67 Year
  Sex: Female

DRUGS (66)
  1. CIPRO [Suspect]
     Indication: SEPSIS
     Route: 042
     Dates: start: 20021216, end: 20021230
  2. CIPRO [Suspect]
     Route: 042
     Dates: start: 20021216, end: 20021230
  3. BAYOTENSIN [Suspect]
     Indication: HYPERTENSIVE CRISIS
     Route: 048
     Dates: start: 20021219, end: 20021219
  4. BAYOTENSIN [Suspect]
     Route: 048
     Dates: start: 20021229, end: 20021230
  5. BAYOTENSIN [Suspect]
     Route: 048
     Dates: start: 20030103, end: 20030103
  6. LORZAAR PLUS [Suspect]
     Indication: HYPERTENSION
     Route: 048
     Dates: start: 20021021, end: 20021213
  7. LORZAAR PLUS [Suspect]
     Route: 048
     Dates: start: 20030102
  8. NITROLINGUAL [Suspect]
     Indication: HYPERTENSIVE CRISIS
     Route: 055
     Dates: start: 20021230, end: 20021230
  9. NITROLINGUAL [Suspect]
     Route: 055
     Dates: start: 20021219, end: 20021219
  10. NITROLINGUAL [Suspect]
     Route: 055
     Dates: start: 20071214, end: 20071214
  11. VOLTAREN [Suspect]
     Indication: ARTHRALGIA
     Route: 048
     Dates: start: 20021217
  12. VOLTAREN [Suspect]
     Route: 048
     Dates: start: 20021214, end: 20021214
  13. INSUMAN RAPID [Suspect]
     Indication: DIABETES MELLITUS
     Route: 058
     Dates: start: 20021217, end: 20021217
  14. INSUMAN RAPID [Suspect]
     Route: 058
     Dates: start: 20021226, end: 20021227
  15. INSUMAN RAPID [Suspect]
     Route: 058
     Dates: start: 20021230, end: 20021230
  16. CLEXANE [Suspect]
     Indication: THROMBOSIS PROPHYLAXIS
     Route: 058
     Dates: start: 20021218
  17. LANTUS [Suspect]
     Indication: DIABETES MELLITUS
     Route: 058
     Dates: start: 20021219
  18. NEXIUM [Suspect]
     Indication: PROPHYLAXIS
     Route: 048
     Dates: start: 20021219
  19. CONTRAST AGENT, NOS [Suspect]
     Indication: ENEMA ADMINISTRATION
     Route: 065
     Dates: start: 20021230, end: 20021230
  20. NOVALGIN [Suspect]
     Indication: PAIN
     Route: 048
     Dates: start: 20021230, end: 20021231
  21. NOVALGIN [Suspect]
     Route: 048
     Dates: start: 20030107
  22. SILOMAT [Suspect]
     Indication: COUGH
     Route: 048
     Dates: start: 20030101, end: 20030103
  23. DIAZEPAM [Concomitant]
     Indication: AGITATION
     Route: 065
     Dates: start: 20021212, end: 20021212
  24. AUGMENTIN '125' [Concomitant]
     Indication: SEPSIS
     Route: 042
     Dates: start: 20021213, end: 20021216
  25. AUGMENTIN '125' [Concomitant]
     Route: 048
     Dates: start: 20021210, end: 20021212
  26. NORVASC [Concomitant]
     Indication: HYPERTENSION
     Route: 048
     Dates: start: 20021001, end: 20021214
  27. HETTRAL-PEPSINWEIN [Concomitant]
     Indication: CONSTIPATION
     Route: 048
     Dates: start: 20021210, end: 20021214
  28. JONOSTERIL [Concomitant]
     Indication: FLUID REPLACEMENT
     Route: 042
     Dates: start: 20021129, end: 20021212
  29. JONOSTERIL [Concomitant]
     Route: 042
     Dates: start: 20021214, end: 20021215
  30. TAMBOCOR [Concomitant]
     Indication: ATRIAL FIBRILLATION
     Route: 042
     Dates: start: 20021218, end: 20021218
  31. TAMBOCOR [Concomitant]
     Route: 042
     Dates: start: 20021126, end: 20021212
  32. PANTOZOL [Concomitant]
     Indication: PROPHYLAXIS
     Route: 048
     Dates: start: 20021016, end: 20021214
  33. PANTOZOL [Concomitant]
     Route: 048
     Dates: start: 20021217, end: 20021218
  34. HEPARIN [Concomitant]
     Indication: THROMBOSIS PROPHYLAXIS
     Route: 058
     Dates: start: 20021118, end: 20021217
  35. HEPARIN [Concomitant]
     Route: 058
     Dates: start: 20021229, end: 20021229
  36. ALTINSULIN [Concomitant]
     Indication: DIABETES MELLITUS
     Route: 058
     Dates: start: 20021220, end: 20030101
  37. ALTINSULIN [Concomitant]
     Route: 058
     Dates: start: 20021212, end: 20021212
  38. BELOC-ZOK [Concomitant]
     Indication: HYPERTENSION
     Route: 048
     Dates: start: 20021216
  39. BELOC-ZOK [Concomitant]
     Route: 048
     Dates: start: 20021023, end: 20021214
  40. DECORTIN H [Concomitant]
     Indication: MIXED CONNECTIVE TISSUE DISEASE
     Route: 048
     Dates: start: 20021219
  41. DECORTIN H [Concomitant]
     Route: 048
     Dates: start: 20021021, end: 20021213
  42. TIM-OPHTAL AT [Concomitant]
     Indication: CATARACT
     Route: 065
     Dates: start: 20021016, end: 20021214
  43. TIM-OPHTAL AT [Concomitant]
     Route: 065
     Dates: start: 20021216
  44. LACRIMAL [Concomitant]
     Indication: DRY EYE
     Route: 065
     Dates: start: 20021216
  45. LACRIMAL [Concomitant]
     Route: 065
     Dates: start: 20021016, end: 20021214
  46. TRAMAL [Concomitant]
     Indication: PAIN
     Route: 048
     Dates: start: 20021213, end: 20021213
  47. BENURON [Concomitant]
     Indication: PYREXIA
     Route: 065
     Dates: start: 20021214, end: 20021214
  48. ACETAMINOPHEN [Concomitant]
     Indication: PYREXIA
     Route: 065
     Dates: start: 20021214, end: 20021215
  49. ANTRA [Concomitant]
     Indication: PROPHYLAXIS
     Route: 042
     Dates: start: 20021214, end: 20021219
  50. NUTRIFLEX PERI [Concomitant]
     Indication: PARENTERAL NUTRITION
     Route: 042
     Dates: start: 20021214, end: 20030101
  51. LIPOFUNDIN [Concomitant]
     Indication: PARENTERAL NUTRITION
     Route: 042
     Dates: start: 20021216, end: 20021216
  52. PERFALGAN [Concomitant]
     Indication: PYREXIA
     Route: 042
     Dates: start: 20021216, end: 20021216
  53. VITALIPID [Concomitant]
     Indication: VITAMIN SUPPLEMENTATION
     Route: 042
     Dates: start: 20021216, end: 20021217
  54. BELOC [Concomitant]
     Indication: TACHYCARDIA
     Route: 042
     Dates: start: 20021217, end: 20021217
  55. JONOSTERIL WITH GLUCOSE [Concomitant]
     Indication: FLUID REPLACEMENT
     Route: 042
     Dates: start: 20021218, end: 20021218
  56. PCM [Concomitant]
     Indication: PYREXIA
     Route: 048
     Dates: start: 20021219, end: 20021219
  57. INSULIN HUMAN [Concomitant]
     Indication: DIABETES MELLITUS
     Route: 042
     Dates: start: 20021219, end: 20021219
  58. MULTI-VITAMIN [Concomitant]
     Indication: VITAMIN SUPPLEMENTATION
     Route: 042
     Dates: start: 20021219, end: 20021230
  59. GENTAMICIN [Concomitant]
     Indication: INFECTION
     Route: 042
     Dates: start: 20021220, end: 20021223
  60. NATRIUMCHLORID [Concomitant]
     Indication: INFECTION
     Route: 042
     Dates: start: 20021220, end: 20021223
  61. NATRIUMCHLORID [Concomitant]
     Route: 048
     Dates: start: 20021220
  62. LASIX [Concomitant]
     Indication: OEDEMA
     Route: 048
     Dates: start: 20021221, end: 20021221
  63. LACTULOSE [Concomitant]
     Indication: CONSTIPATION
     Route: 048
     Dates: start: 20030104, end: 20030104
  64. LACTULOSE [Concomitant]
     Route: 048
     Dates: start: 20021221, end: 20021221
  65. VALVERDE BALDRIAN [Concomitant]
     Indication: SLEEP DISORDER
     Route: 048
     Dates: start: 20020102, end: 20020105
  66. TAVEGIL [Concomitant]
     Indication: RASH
     Route: 048
     Dates: start: 20030106

REACTIONS (7)
  - BLISTER [None]
  - NIKOLSKY'S SIGN [None]
  - ORAL MUCOSA EROSION [None]
  - PAIN OF SKIN [None]
  - PYREXIA [None]
  - RASH MACULAR [None]
  - TOXIC EPIDERMAL NECROLYSIS [None]
